FAERS Safety Report 23150550 (Version 1)
Quarter: 2023Q4

REPORT INFORMATION
  Report Type: Spontaneous
  Country: US (occurrence: None)
  Receive Date: 20231105
  Receipt Date: 20231105
  Transmission Date: 20240110
  Serious: No
  Sender: FDA-Public Use
  Company Number: None

PATIENT
  Age: 72 Year
  Sex: Male
  Weight: 81 kg

DRUGS (9)
  1. PRALUENT [Suspect]
     Active Substance: ALIROCUMAB
     Indication: Low density lipoprotein increased
     Dosage: OTHER QUANTITY : 1 INJECTION(S);?OTHER FREQUENCY : EVERY TWO WEEKS;?OTHER ROUTE : INJECTED INTO TISS
     Route: 050
     Dates: start: 20230501, end: 20230918
  2. ATORVASTATIN [Concomitant]
     Active Substance: ATORVASTATIN
  3. LISINOPRIL [Concomitant]
     Active Substance: LISINOPRIL
  4. METOPROLOL [Concomitant]
     Active Substance: METOPROLOL
  5. FLECAINIDE [Concomitant]
     Active Substance: FLECAINIDE
  6. ELIQUIS [Concomitant]
     Active Substance: APIXABAN
  7. double hip replacement [Concomitant]
  8. COENZYME Q10 [Concomitant]
     Active Substance: DIETARY SUPPLEMENT\UBIDECARENONE
  9. daily pre/probiotic [Concomitant]

REACTIONS (2)
  - Tinnitus [None]
  - Therapy cessation [None]

NARRATIVE: CASE EVENT DATE: 20230701
